FAERS Safety Report 7539100-6 (Version None)
Quarter: 2011Q2

REPORT INFORMATION
  Report Type: 
  Country: None (occurrence: None)
  Receive Date: 20110610
  Receipt Date: 19970807
  Transmission Date: 20111010
  Serious: Yes (Other)
  Sender: FDA-Public Use
  Company Number: PHHO1997BR04104

PATIENT
  Age: 65 Year
  Sex: Female
  Weight: 92 kg

DRUGS (4)
  1. NARCARICIN [Concomitant]
  2. DIURETICS [Concomitant]
     Dates: start: 19970807
  3. DIOVAN [Suspect]
     Dosage: 80 MG, DAILY
     Route: 048
     Dates: start: 19970508
  4. DIGOXIN [Concomitant]

REACTIONS (1)
  - GOUT [None]
